FAERS Safety Report 8124164-1 (Version None)
Quarter: 2012Q1

REPORT INFORMATION
  Report Type: 
  Country: None (occurrence: None)
  Receive Date: 20120209
  Receipt Date: 20120207
  Transmission Date: 20120608
  Serious: Yes (Death)
  Sender: FDA-Public Use
  Company Number: ES-B.I. PHARMACEUTICALS,INC./RIDGEFIELD-2012-ES-00039ES

PATIENT
  Age: 81 Year
  Sex: Male

DRUGS (12)
  1. LERCANIDIPINE [Concomitant]
  2. ATORVASTATINA [Concomitant]
  3. OMEPRAZOLE [Concomitant]
  4. FUROSEMIDE [Concomitant]
  5. CANDESARTAN CILEXETIL [Concomitant]
  6. IRON SULFATETHIAMIN COMPOUND TAB [Concomitant]
  7. PRADAXA [Suspect]
     Indication: ATRIAL FIBRILLATION
     Dosage: 220 MG
     Route: 048
     Dates: start: 20111201, end: 20120101
  8. ALLOPURINOL [Concomitant]
  9. EZETIMIBE [Concomitant]
  10. LATANOPROST [Concomitant]
  11. ASPIRIN [Concomitant]
  12. LORAZEPAN [Concomitant]

REACTIONS (4)
  - HAEMATEMESIS [None]
  - HAEMATOCHEZIA [None]
  - GASTROINTESTINAL HAEMORRHAGE [None]
  - EPISTAXIS [None]
